FAERS Safety Report 20897630 (Version 1)
Quarter: 2022Q2

REPORT INFORMATION
  Report Type: Spontaneous
  Country: US (occurrence: US)
  Receive Date: 20220531
  Receipt Date: 20220531
  Transmission Date: 20220721
  Serious: No
  Sender: FDA-Public Use
  Company Number: US-BRISTOL-MYERS SQUIBB COMPANY-2022-034631

PATIENT
  Age: 68 Year
  Sex: Male
  Weight: 62.6 kg

DRUGS (1)
  1. POMALYST [Suspect]
     Active Substance: POMALIDOMIDE
     Indication: Product used for unknown indication
     Dosage: 2W ON 2W OFF
     Route: 048
     Dates: start: 20220413

REACTIONS (1)
  - Rash [Recovering/Resolving]
